FAERS Safety Report 23599907 (Version 1)
Quarter: 2024Q1

REPORT INFORMATION
  Report Type: Spontaneous
  Country: CN (occurrence: CN)
  Receive Date: 20240306
  Receipt Date: 20240306
  Transmission Date: 20240410
  Serious: Yes (Hospitalization, Other)
  Sender: FDA-Public Use
  Company Number: None

PATIENT
  Age: 58 Year
  Sex: Female
  Weight: 66 kg

DRUGS (10)
  1. MESNA [Suspect]
     Active Substance: MESNA
     Indication: Angioimmunoblastic T-cell lymphoma
     Dosage: UNK, AS A PART OF FIRST CYCLE OF R-MINE REGIMEN
     Route: 065
     Dates: start: 20231220
  2. MESNA [Suspect]
     Active Substance: MESNA
     Indication: Diffuse large B-cell lymphoma
  3. IFOSFAMIDE [Suspect]
     Active Substance: IFOSFAMIDE
     Indication: Angioimmunoblastic T-cell lymphoma
     Dosage: 2 MG, ONE TIME IN ONE DAY, D1-2, FIRST CYCLE OF R-MINE REGIMEN
     Route: 041
     Dates: start: 20231221, end: 20231222
  4. IFOSFAMIDE [Suspect]
     Active Substance: IFOSFAMIDE
     Indication: Diffuse large B-cell lymphoma
  5. ETOPOSIDE [Suspect]
     Active Substance: ETOPOSIDE
     Indication: Diffuse large B-cell lymphoma
     Dosage: 100 MG, ONE TIME IN ONE DAY, D1-3, FIRST CYCLE OF R-MINE REGIMEN
     Route: 041
     Dates: start: 20231221, end: 20231223
  6. ETOPOSIDE [Suspect]
     Active Substance: ETOPOSIDE
     Indication: Angioimmunoblastic T-cell lymphoma
  7. RITUXIMAB [Suspect]
     Active Substance: RITUXIMAB
     Indication: Diffuse large B-cell lymphoma
     Dosage: 600 MG, ONE TIME IN ONE DAY, D0, FIRST CYCLE OF R-MINE REGIMEN
     Route: 041
     Dates: start: 20231220, end: 20231220
  8. RITUXIMAB [Suspect]
     Active Substance: RITUXIMAB
     Indication: Angioimmunoblastic T-cell lymphoma
  9. MITOXANTRONE [Suspect]
     Active Substance: MITOXANTRONE HYDROCHLORIDE
     Indication: Angioimmunoblastic T-cell lymphoma
     Dosage: 30 MG, D1, FIRST CYCLE OF R-MINE REGIMEN (LIPOSOME)
     Route: 065
     Dates: start: 20231221, end: 20231221
  10. MITOXANTRONE [Suspect]
     Active Substance: MITOXANTRONE HYDROCHLORIDE
     Indication: Diffuse large B-cell lymphoma

REACTIONS (1)
  - Myelosuppression [Recovering/Resolving]

NARRATIVE: CASE EVENT DATE: 20240101
